FAERS Safety Report 7247314-8 (Version None)
Quarter: 2011Q1

REPORT INFORMATION
  Report Type: 
  Country: None (occurrence: None)
  Receive Date: 20110127
  Receipt Date: 20110124
  Transmission Date: 20110831
  Serious: Yes (Hospitalization)
  Sender: FDA-Public Use
  Company Number: B0695583A

PATIENT
  Sex: Female

DRUGS (1)
  1. CLAMOXYL [Suspect]
     Route: 048
     Dates: start: 20101110, end: 20101110

REACTIONS (7)
  - ABDOMINAL PAIN UPPER [None]
  - ANAPHYLACTIC SHOCK [None]
  - URTICARIA [None]
  - HYPOTENSION [None]
  - HYPERHIDROSIS [None]
  - PALLOR [None]
  - PAINFUL RESPIRATION [None]
